FAERS Safety Report 7372104-5 (Version None)
Quarter: 2011Q1

REPORT INFORMATION
  Report Type: 
  Country: None (occurrence: None)
  Receive Date: 20110324
  Receipt Date: 20110317
  Transmission Date: 20110831
  Serious: Yes (Death)
  Sender: FDA-Public Use
  Company Number: US-ROCHE-766998

PATIENT
  Age: 51 Year
  Sex: Female

DRUGS (10)
  1. LAMOTRIGINE [Suspect]
     Dosage: ROUTE: INGESTION
     Route: 048
  2. PARACETAMOL [Suspect]
     Dosage: ROUTE: INGESTION
     Route: 048
  3. TRAMADOL [Suspect]
     Dosage: FORM: INGESTION
     Route: 048
  4. GABAPENTIN [Suspect]
     Dosage: ROUTE: INGESTION
     Route: 048
  5. DIAZEPAM [Suspect]
     Dosage: ONGOING STATUS UNKNOWN AT THE TIME OF DEATH
     Route: 048
  6. BACLOFEN [Suspect]
     Dosage: ROUTE: INGESTION
     Route: 048
  7. LORAZEPAM [Suspect]
     Dosage: ROUTE: INGESTION
     Route: 048
  8. TRAZODONE [Suspect]
     Dosage: ROUTE: INGESTION
     Route: 048
  9. CARISOPRODOL [Suspect]
     Dosage: ROUTE: INGESTION
     Route: 048
  10. HYDROCODONE [Suspect]
     Dosage: ROUTE: INGESTION
     Route: 048

REACTIONS (2)
  - COMPLETED SUICIDE [None]
  - TOXICITY TO VARIOUS AGENTS [None]
